FAERS Safety Report 24263873 (Version 1)
Quarter: 2024Q3

REPORT INFORMATION
  Report Type: Spontaneous
  Country: US (occurrence: US)
  Receive Date: 20240829
  Receipt Date: 20240829
  Transmission Date: 20241017
  Serious: No
  Sender: FRESENIUS KABI
  Company Number: US-FreseniusKabi-FK202412862

PATIENT

DRUGS (1)
  1. POLOCAINE [Suspect]
     Active Substance: MEPIVACAINE HYDROCHLORIDE
     Indication: Product used for unknown indication
     Dosage: FORM OF ADMINISTRATION- INJECTION?30 ML VIALS

REACTIONS (1)
  - Therapeutic product effect delayed [Unknown]
